FAERS Safety Report 17893445 (Version 1)
Quarter: 2020Q2

REPORT INFORMATION
  Report Type: Spontaneous
  Country: FR (occurrence: FR)
  Receive Date: 20200615
  Receipt Date: 20200615
  Transmission Date: 20200714
  Serious: Yes (Death, Other)
  Sender: FDA-Public Use
  Company Number: FR-ROCHE-2618117

PATIENT
  Age: 84 Year
  Sex: Male
  Weight: 80 kg

DRUGS (3)
  1. CELLCEPT [Suspect]
     Active Substance: MYCOPHENOLATE MOFETIL\MYCOPHENOLATE MOFETIL HYDROCHLORIDE
     Indication: MYOCARDITIS
     Dosage: IN FEB/2020, HE RECEIVED MOST RECENT DOSE
     Route: 048
     Dates: start: 20200113
  2. PREDNISONE. [Suspect]
     Active Substance: PREDNISONE
     Indication: MYOCARDITIS
     Dosage: IN FEB/2020, HE RECEIVED MOST RECENT DOSE
     Route: 048
     Dates: start: 202001
  3. ORENCIA [Suspect]
     Active Substance: ABATACEPT
     Indication: MYOCARDITIS
     Dosage: IN FEB/2020, HE RECEIVED MOST RECENT DOSE
     Route: 042
     Dates: start: 20200102

REACTIONS (3)
  - Acute respiratory distress syndrome [Fatal]
  - Septic shock [Fatal]
  - Altered state of consciousness [Not Recovered/Not Resolved]

NARRATIVE: CASE EVENT DATE: 20200303
